FAERS Safety Report 15524297 (Version 2)
Quarter: 2018Q4

REPORT INFORMATION
  Report Type: Report from Study
  Country: CA (occurrence: CA)
  Receive Date: 20181018
  Receipt Date: 20181024
  Transmission Date: 20190205
  Serious: Yes (Other)
  Sender: FDA-Public Use
  Company Number: CA-BIOGEN-2018BI00646060

PATIENT
  Age: 65 Year
  Sex: Female

DRUGS (2)
  1. FAMPYRA [Suspect]
     Active Substance: DALFAMPRIDINE
     Route: 048
     Dates: start: 20160206
  2. FAMPYRA [Suspect]
     Active Substance: DALFAMPRIDINE
     Indication: GAIT DISTURBANCE
     Route: 048
     Dates: start: 20160108

REACTIONS (13)
  - Gait inability [Not Recovered/Not Resolved]
  - Gastrointestinal pain [Not Recovered/Not Resolved]
  - Hyperthermia [Unknown]
  - Product dose omission [Recovered/Resolved]
  - Fatigue [Unknown]
  - Chromaturia [Not Recovered/Not Resolved]
  - Arterial occlusive disease [Unknown]
  - Pain [Not Recovered/Not Resolved]
  - Balance disorder [Unknown]
  - Mobility decreased [Not Recovered/Not Resolved]
  - Photopsia [Recovered/Resolved]
  - Spinal pain [Unknown]
  - Coccydynia [Unknown]

NARRATIVE: CASE EVENT DATE: 20180726
